FAERS Safety Report 15222998 (Version 2)
Quarter: 2018Q3

REPORT INFORMATION
  Report Type: Report from Study
  Country: CA (occurrence: CA)
  Receive Date: 20180731
  Receipt Date: 20180816
  Transmission Date: 20181010
  Serious: Yes (Other)
  Sender: FDA-Public Use
  Company Number: CA-JNJFOC-20180733826

PATIENT
  Age: 36 Year
  Sex: Male
  Weight: 89 kg

DRUGS (1)
  1. STELARA [Suspect]
     Active Substance: USTEKINUMAB
     Indication: CROHN^S DISEASE
     Dosage: STRENGTH = 90 MG
     Route: 058

REACTIONS (4)
  - Drug ineffective [Unknown]
  - Product use issue [Unknown]
  - Subcutaneous abscess [Unknown]
  - Off label use [Unknown]

NARRATIVE: CASE EVENT DATE: 20180720
